FAERS Safety Report 6967496-2 (Version None)
Quarter: 2010Q3

REPORT INFORMATION
  Report Type: 
  Country: None (occurrence: None)
  Receive Date: 20100907
  Receipt Date: 20100831
  Transmission Date: 20110219
  Serious: Yes (Hospitalization)
  Sender: FDA-Public Use
  Company Number: US-B.I. PHARMACEUTICALS,INC./RIDGEFIELD-2010-BP-09550BP

PATIENT
  Sex: Female

DRUGS (13)
  1. SPIRIVA [Suspect]
     Indication: CHRONIC OBSTRUCTIVE PULMONARY DISEASE
     Dosage: 18 MCG
     Route: 055
     Dates: start: 20070101
  2. SPIRIVA [Suspect]
     Indication: EMPHYSEMA
  3. SPIRIVA [Suspect]
     Indication: BRONCHITIS CHRONIC
  4. PREDNISONE [Suspect]
     Indication: CHRONIC OBSTRUCTIVE PULMONARY DISEASE
  5. PULMICORT [Concomitant]
     Indication: CHRONIC OBSTRUCTIVE PULMONARY DISEASE
  6. ALBUTEROL [Concomitant]
     Indication: CHRONIC OBSTRUCTIVE PULMONARY DISEASE
  7. BROVANA [Concomitant]
     Indication: CHRONIC OBSTRUCTIVE PULMONARY DISEASE
  8. DILTIAZEM [Concomitant]
     Indication: HYPERTENSION
  9. LISINOPRIL [Concomitant]
     Indication: HYPERTENSION
  10. SIMVASTATIN [Concomitant]
     Indication: BLOOD CHOLESTEROL INCREASED
  11. XANAX [Concomitant]
     Indication: ANXIETY
  12. ASPIRIN [Concomitant]
     Indication: PROPHYLAXIS
  13. VITAMINS [Concomitant]
     Indication: PROPHYLAXIS

REACTIONS (3)
  - BRONCHITIS [None]
  - DIABETES MELLITUS [None]
  - OSTEOPENIA [None]
